FAERS Safety Report 18953683 (Version 1)
Quarter: 2021Q1

REPORT INFORMATION
  Report Type: Spontaneous
  Country: DE (occurrence: DE)
  Receive Date: 20210301
  Receipt Date: 20210301
  Transmission Date: 20210420
  Serious: Yes (Other)
  Sender: FDA-Public Use
  Company Number: NVSC2021DE040335

PATIENT
  Age: 40 Year
  Sex: Female
  Weight: 44 kg

DRUGS (1)
  1. AMOXIHEXAL 1000 [Suspect]
     Active Substance: AMOXICILLIN
     Indication: CYSTITIS
     Dosage: 3000 MG, QD
     Route: 048
     Dates: start: 20210213

REACTIONS (2)
  - Fatigue [Not Recovered/Not Resolved]
  - Hallucination [Not Recovered/Not Resolved]

NARRATIVE: CASE EVENT DATE: 20210214
